FAERS Safety Report 24810816 (Version 1)
Quarter: 2025Q1

REPORT INFORMATION
  Report Type: Spontaneous
  Country: US (occurrence: None)
  Receive Date: 20250104
  Receipt Date: 20250104
  Transmission Date: 20250409
  Serious: No
  Sender: FDA-CTU
  Company Number: None

PATIENT
  Age: 30 Year
  Sex: Female
  Weight: 112.5 kg

DRUGS (2)
  1. LEVONORGESTREL [Suspect]
     Active Substance: LEVONORGESTREL
     Indication: Post coital contraception
     Route: 048
     Dates: start: 20241223, end: 20241223
  2. Uqora Defend- part 2 dietary supplement [Concomitant]

REACTIONS (2)
  - Drug ineffective [None]
  - Product label issue [None]

NARRATIVE: CASE EVENT DATE: 20241224
